FAERS Safety Report 20048889 (Version 1)
Quarter: 2021Q4

REPORT INFORMATION
  Report Type: Spontaneous
  Country: GB (occurrence: GB)
  Receive Date: 20211109
  Receipt Date: 20211109
  Transmission Date: 20220304
  Serious: Yes (Other)
  Sender: FDA-Public Use
  Company Number: GB-MLMSERVICE-20211021-3180148-1

PATIENT
  Age: 30 Year
  Sex: Male

DRUGS (9)
  1. LINEZOLID [Suspect]
     Active Substance: LINEZOLID
     Indication: Meningitis tuberculous
     Dosage: 600 MG, 2X/DAY
  2. LINEZOLID [Suspect]
     Active Substance: LINEZOLID
     Dosage: 600 MG, 1X/DAY
  3. PYRAZINAMIDE [Suspect]
     Active Substance: PYRAZINAMIDE
     Indication: Meningitis tuberculous
     Dosage: 2 G, 1X/DAY
     Route: 048
  4. ISONIAZID [Concomitant]
     Active Substance: ISONIAZID
     Indication: Meningitis tuberculous
     Dosage: 300 MG
     Route: 042
  5. LEVOFLOXACIN [Concomitant]
     Active Substance: LEVOFLOXACIN
     Indication: Meningitis tuberculous
     Dosage: UNK
  6. ASPIRIN [Concomitant]
     Active Substance: ASPIRIN
     Indication: Central nervous system vasculitis
     Dosage: UNK
  7. RIFAMPIN [Concomitant]
     Active Substance: RIFAMPIN
     Indication: Meningitis tuberculous
     Dosage: 600 MG, 1X/DAY
     Route: 042
  8. RIFAMPIN [Concomitant]
     Active Substance: RIFAMPIN
     Dosage: 1200 MG, 1X/DAY
     Route: 042
  9. DEXAMETHASONE [Concomitant]
     Active Substance: DEXAMETHASONE
     Indication: Meningitis tuberculous
     Dosage: 0.3 MG/KG, 1X/DAY
     Route: 042

REACTIONS (2)
  - Neuropathy peripheral [Unknown]
  - Blood uric acid increased [Unknown]
